FAERS Safety Report 7315232-2 (Version None)
Quarter: 2011Q1

REPORT INFORMATION
  Report Type: 
  Country: None (occurrence: None)
  Receive Date: 20110218
  Receipt Date: 20110218
  Transmission Date: 20110831
  Serious: Yes (Other)
  Sender: FDA-Public Use
  Company Number: None

PATIENT
  Age: 26 Year
  Sex: Female
  Weight: 71.2147 kg

DRUGS (1)
  1. LEVOTHYROXINE SODIUM [Suspect]
     Indication: HYPOTHYROIDISM
     Dosage: DAILY PO
     Route: 048
     Dates: start: 19790101

REACTIONS (4)
  - DIZZINESS [None]
  - ANXIETY [None]
  - FEELING JITTERY [None]
  - FEELING ABNORMAL [None]
